FAERS Safety Report 8240844-1 (Version None)
Quarter: 2012Q1

REPORT INFORMATION
  Report Type: 
  Country: None (occurrence: None)
  Receive Date: 20120328
  Receipt Date: 20120320
  Transmission Date: 20120608
  Serious: Yes (Other)
  Sender: FDA-Public Use
  Company Number: US-ASTRAZENECA-2012SE19213

PATIENT
  Age: 74 Year
  Sex: Female

DRUGS (1)
  1. PULMICORT [Suspect]
     Route: 055

REACTIONS (3)
  - DYSPHONIA [None]
  - BEDRIDDEN [None]
  - INCREASED UPPER AIRWAY SECRETION [None]
